FAERS Safety Report 6528941-X (Version None)
Quarter: 2009Q4

REPORT INFORMATION
  Report Type: 
  Country: None (occurrence: None)
  Receive Date: 20091224
  Receipt Date: 20091208
  Transmission Date: 20100525
  Serious: No
  Sender: FDA-Public Use
  Company Number: APP200900897

PATIENT
  Age: 72 Year
  Sex: Male
  Weight: 41 kg

DRUGS (5)
  1. DEXAMETHASONE SODIUM PHOSPHATE [Suspect]
     Indication: MULTIPLE MYELOMA
     Dosage: 20 MG, ON DAY 1-4 AND 17-20, 5 CYCLES
     Dates: start: 20060823, end: 20061213
  2. THALIDOMIDE [Suspect]
     Indication: MULTIPLE MYELOMA
     Dosage: MG, FOR 5 CYCLES, UNK
     Dates: start: 20060823, end: 20061213
  3. MELPHALAN HYDROCHLORIDE [Suspect]
     Indication: MULTIPLE MYELOMA
     Dosage: 9 MG/M2, FOR 5 CYCLES, 9 MG/M2, 1 D
     Dates: start: 20060401, end: 20060701
  4. MELPHALAN HYDROCHLORIDE [Suspect]
     Indication: MULTIPLE MYELOMA
     Dosage: 9 MG/M2, FOR 5 CYCLES, 9 MG/M2, 1 D
     Dates: start: 20060823, end: 20061213
  5. PREDNISONE [Suspect]
     Indication: MULTIPLE MYELOMA
     Dates: start: 20060401, end: 20060701

REACTIONS (13)
  - BRAIN NATRIURETIC PEPTIDE INCREASED [None]
  - COR PULMONALE [None]
  - FIBRIN D DIMER INCREASED [None]
  - MITRAL VALVE INCOMPETENCE [None]
  - PLATELET COUNT DECREASED [None]
  - PULMONARY EMBOLISM [None]
  - PULMONARY HYPERTENSION [None]
  - PULMONARY VALVE INCOMPETENCE [None]
  - RESPIRATORY ALKALOSIS [None]
  - SINUS TACHYCARDIA [None]
  - TRICUSPID VALVE INCOMPETENCE [None]
  - VENOUS THROMBOSIS LIMB [None]
  - WHITE BLOOD CELL COUNT DECREASED [None]
